FAERS Safety Report 22109367 (Version 2)
Quarter: 2023Q2

REPORT INFORMATION
  Report Type: Spontaneous
  Country: RU (occurrence: None)
  Receive Date: 20230317
  Receipt Date: 20230411
  Transmission Date: 20230722
  Serious: Yes (Other)
  Sender: FDA-Public Use
  Company Number: RU-ROCHE-3312058

PATIENT
  Age: 12 Year
  Sex: Male

DRUGS (1)
  1. EMICIZUMAB [Suspect]
     Active Substance: EMICIZUMAB
     Indication: Factor VIII deficiency
     Route: 065
     Dates: start: 2021

REACTIONS (6)
  - Craniocerebral injury [Unknown]
  - Brain contusion [Unknown]
  - Pneumocephalus [Unknown]
  - Skull fracture [Unknown]
  - Contusion [Unknown]
  - Burns second degree [Unknown]
